FAERS Safety Report 8936824 (Version 1)
Quarter: 2012Q4

REPORT INFORMATION
  Report Type: 
  Country: CL (occurrence: CL)
  Receive Date: 20121130
  Receipt Date: 20121130
  Transmission Date: 20130627
  Serious: Yes (Other)
  Sender: FDA-Public Use
  Company Number: PHHY2012CL109938

PATIENT
  Age: 65 Year
  Sex: Male

DRUGS (1)
  1. EXFORGE [Suspect]
     Indication: HYPERTENSION
     Dosage: 1 DF (320/10 mg) DAily
     Route: 048
     Dates: start: 2009, end: 2012

REACTIONS (2)
  - Pneumonia [Unknown]
  - Pruritus generalised [Unknown]
